FAERS Safety Report 14304693 (Version 1)
Quarter: 2017Q4

REPORT INFORMATION
  Report Type: Spontaneous
  Country: JP (occurrence: JP)
  Receive Date: 20171219
  Receipt Date: 20171219
  Transmission Date: 20180321
  Serious: Yes (Other)
  Sender: FDA-Public Use
  Company Number: JP-OTSUKA-JP-2012-15715

PATIENT
  Age: 19 Year
  Sex: Female
  Weight: 50 kg

DRUGS (13)
  1. ZYPREXA [Concomitant]
     Active Substance: OLANZAPINE
     Indication: RESTLESSNESS
     Dosage: 5 MG, PRN
     Route: 048
     Dates: start: 20110311
  2. LENDORMIN [Concomitant]
     Active Substance: BROTIZOLAM
     Indication: INSOMNIA
     Dosage: 0.25 MG, QD
     Route: 048
     Dates: start: 20110214, end: 20120618
  3. ABILIFY [Suspect]
     Active Substance: ARIPIPRAZOLE
     Indication: SCHIZOPHRENIA
     Dosage: 6 MG, QD
     Route: 048
     Dates: start: 20110214, end: 20110305
  4. ABILIFY [Suspect]
     Active Substance: ARIPIPRAZOLE
     Dosage: 6 MG, QD
     Route: 048
     Dates: start: 20120526, end: 20120604
  5. ABILIFY [Suspect]
     Active Substance: ARIPIPRAZOLE
     Dosage: 6 MG, QD
     Route: 048
     Dates: start: 20110309, end: 20110429
  6. ABILIFY [Suspect]
     Active Substance: ARIPIPRAZOLE
     Dosage: 9 MG, QD
     Route: 048
     Dates: start: 20110802, end: 20120525
  7. DEPAS [Concomitant]
     Active Substance: ETIZOLAM
     Dosage: 1 MG, TID
     Route: 048
     Dates: start: 20110320, end: 20120618
  8. SILECE [Concomitant]
     Active Substance: FLUNITRAZEPAM
     Dosage: 0.5 MG, QD
     Route: 048
     Dates: start: 20111119, end: 20120618
  9. ABILIFY [Suspect]
     Active Substance: ARIPIPRAZOLE
     Dosage: 9 MG, QD
     Route: 048
     Dates: start: 20120605, end: 20120618
  10. ABILIFY [Suspect]
     Active Substance: ARIPIPRAZOLE
     Dosage: 12 MG, QD
     Route: 048
     Dates: start: 20110430, end: 20110801
  11. DEPAS [Concomitant]
     Active Substance: ETIZOLAM
     Indication: IRRITABILITY
     Dosage: 0.5 MG, TID
     Route: 048
     Dates: start: 20110306, end: 20110319
  12. ABILIFY [Suspect]
     Active Substance: ARIPIPRAZOLE
     Dosage: 3 MG, QD
     Route: 048
     Dates: start: 20110305, end: 20110308
  13. SILECE [Concomitant]
     Active Substance: FLUNITRAZEPAM
     Indication: INSOMNIA
     Dosage: 1 MG, QD
     Route: 048
     Dates: start: 20110528, end: 20111118

REACTIONS (3)
  - Salivary hypersecretion [Recovered/Resolved]
  - Torticollis [Recovered/Resolved]
  - Parkinsonism [Recovered/Resolved]

NARRATIVE: CASE EVENT DATE: 20110222
